FAERS Safety Report 7438026-6 (Version None)
Quarter: 2011Q2

REPORT INFORMATION
  Report Type: 
  Country: None (occurrence: None)
  Receive Date: 20110426
  Receipt Date: 20110421
  Transmission Date: 20111010
  Serious: Yes (Death)
  Sender: FDA-Public Use
  Company Number: BR-GENZYME-CERZ-1002031

PATIENT
  Sex: Male

DRUGS (2)
  1. TALIGLUCERASE [Suspect]
     Indication: GAUCHER'S DISEASE
     Dosage: UNK
     Route: 065
     Dates: start: 20101201, end: 20110401
  2. CEREZYME [Suspect]
     Indication: GAUCHER'S DISEASE
     Dosage: UNK
     Route: 042
     Dates: end: 20101201

REACTIONS (1)
  - DEATH [None]
